FAERS Safety Report 4464713-8 (Version None)
Quarter: 2004Q3

REPORT INFORMATION
  Report Type: 
  Country: None (occurrence: None)
  Receive Date: 20040929
  Receipt Date: 20040929
  Transmission Date: 20050211
  Serious: Yes (Hospitalization)
  Sender: FDA-Public Use
  Company Number: None

PATIENT
  Sex: Male

DRUGS (18)
  1. TACROLIMUS  1 MG [Suspect]
     Indication: TRANSPLANT
     Dosage: SEE IMAGE
     Route: 048
  2. AMITRIPTYLINE HCL [Concomitant]
  3. AMOXICILLIN [Concomitant]
  4. EPOGEN [Concomitant]
  5. FELODIPINE [Concomitant]
  6. FENTANYL [Concomitant]
  7. FLUNISOLIDE [Concomitant]
  8. FOLIC ACID [Concomitant]
  9. FUROSEMIDE [Concomitant]
  10. GABAPENTIN [Concomitant]
  11. HUMAN LENTE INSULIN [Concomitant]
  12. METOPROLOL [Concomitant]
  13. NITROGLYCERIN [Concomitant]
  14. PREDNISONE [Concomitant]
  15. PYRIDOXINE [Concomitant]
  16. RABEPRAZOLE SODIUM [Concomitant]
  17. TERAZOSIN HCL [Concomitant]
  18. TESTOSTERONE [Concomitant]

REACTIONS (1)
  - RENAL FAILURE ACUTE [None]
